FAERS Safety Report 8344884-3 (Version None)
Quarter: 2012Q2

REPORT INFORMATION
  Report Type: 
  Country: None (occurrence: None)
  Receive Date: 20120508
  Receipt Date: 20100319
  Transmission Date: 20120825
  Serious: Yes (Other)
  Sender: FDA-Public Use
  Company Number: US-TEVA-2010001433

PATIENT
  Sex: Female

DRUGS (14)
  1. FENTORA [Suspect]
     Indication: BREAKTHROUGH PAIN
     Route: 002
     Dates: start: 20100107
  2. FENTORA [Suspect]
     Route: 002
     Dates: start: 20090601
  3. FENTORA [Suspect]
     Route: 002
     Dates: start: 20090501
  4. CLONAZEPAM [Concomitant]
  5. XOMETA [Concomitant]
     Dates: start: 20090101
  6. GLUPORON [Concomitant]
     Dates: start: 20090101
  7. ZOFRAN [Concomitant]
     Dates: start: 20090101
  8. PHENERGAN [Concomitant]
     Dates: start: 20090101
  9. RESTORIL [Concomitant]
  10. DURAGESIC-100 [Concomitant]
     Dates: start: 20050101
  11. PEMERA [Concomitant]
     Dates: start: 20090101
  12. FIORICET [Concomitant]
  13. ATIVAN [Concomitant]
     Dates: start: 20090601
  14. LYRICA [Concomitant]
     Dates: start: 20090101

REACTIONS (3)
  - STOMATITIS [None]
  - UPPER RESPIRATORY TRACT INFECTION [None]
  - HYPOPNOEA [None]
